FAERS Safety Report 8365970-8 (Version None)
Quarter: 2012Q2

REPORT INFORMATION
  Report Type: 
  Country: None (occurrence: None)
  Receive Date: 20120517
  Receipt Date: 20120510
  Transmission Date: 20120825
  Serious: No
  Sender: FDA-Public Use
  Company Number: US-PFIZER INC-2012114855

PATIENT
  Sex: Male
  Weight: 88.435 kg

DRUGS (2)
  1. CLARITIN-D [Concomitant]
     Indication: SEASONAL ALLERGY
     Dosage: 2 MG, 1X/DAY
     Route: 048
  2. VIAGRA [Suspect]
     Indication: ERECTILE DYSFUNCTION
     Dosage: UNK, DAILY
     Route: 048
     Dates: start: 20120201, end: 20120401

REACTIONS (2)
  - PENILE CURVATURE [None]
  - DRUG INEFFECTIVE [None]
